FAERS Safety Report 7536595-9 (Version None)
Quarter: 2011Q2

REPORT INFORMATION
  Report Type: 
  Country: None (occurrence: None)
  Receive Date: 20110609
  Receipt Date: 20110606
  Transmission Date: 20111010
  Serious: Yes (Disabling)
  Sender: FDA-Public Use
  Company Number: GB-PFIZER INC-2011047553

PATIENT
  Age: 72 Year
  Sex: Male
  Weight: 91.8 kg

DRUGS (9)
  1. LISINOPRIL [Concomitant]
     Dosage: 20 MG, 2X/DAY
     Route: 048
  2. FELODIPINE [Interacting]
     Dosage: 5 MG, 1X/DAY
     Route: 048
     Dates: start: 20101219, end: 20110201
  3. LISINOPRIL [Concomitant]
     Indication: HYPERTENSION
     Dosage: 10 MG, 1X/DAY
     Route: 048
  4. ATORVASTATIN [Concomitant]
     Indication: HYPERCHOLESTEROLAEMIA
     Dosage: 10 MG, 1X/DAY
     Route: 048
  5. ACETYLSALICYLIC ACID [Concomitant]
     Dosage: 75 MG, 1X/DAY
  6. BISOPROLOL [Concomitant]
     Indication: HYPERTENSION
     Dosage: 10 MG, 1X/DAY
     Route: 048
  7. AMLODIPINE BESYLATE [Suspect]
     Indication: HYPERTENSION
     Dosage: 10 MG, 1X/DAY
     Route: 048
  8. ALFUZOSIN [Concomitant]
     Indication: PROSTATIC DISORDER
     Dosage: 10 MG, 1X/DAY
     Route: 048
  9. FINASTERIDE [Concomitant]
     Indication: PROSTATIC DISORDER
     Dosage: 5 MG, 1X/DAY
     Route: 048

REACTIONS (3)
  - DRUG PRESCRIBING ERROR [None]
  - DRUG INTERACTION [None]
  - MYALGIA [None]
